FAERS Safety Report 19463382 (Version 1)
Quarter: 2021Q2

REPORT INFORMATION
  Report Type: Report from Study
  Country: US (occurrence: US)
  Receive Date: 20210625
  Receipt Date: 20210625
  Transmission Date: 20210717
  Serious: Yes (Death)
  Sender: FDA-Public Use
  Company Number: US-BAUSCH-BL-2021-021692

PATIENT
  Age: 10 Year
  Sex: Male
  Weight: 21.7 kg

DRUGS (1)
  1. XENAZINE [Suspect]
     Active Substance: TETRABENAZINE
     Indication: EXTRAPYRAMIDAL DISORDER
     Dosage: DISSOLVE 1 TABLET IN 5 ML OF WATER AND GIVE 2.9 ML VIA J?TUBE THREE TIMES A DAY
     Route: 065
     Dates: start: 2014

REACTIONS (2)
  - Death [Fatal]
  - Wrong technique in product usage process [Unknown]

NARRATIVE: CASE EVENT DATE: 2014
